FAERS Safety Report 5700379-4 (Version None)
Quarter: 2008Q2

REPORT INFORMATION
  Report Type: 
  Country: None (occurrence: None)
  Receive Date: 20080410
  Receipt Date: 20080401
  Transmission Date: 20081010
  Serious: Yes (Disabling)
  Sender: FDA-Public Use
  Company Number: MX-ELI_LILLY_AND_COMPANY-MX200803005761

PATIENT
  Age: 70 Year
  Sex: Female

DRUGS (4)
  1. FORTEO [Suspect]
     Indication: OSTEOPOROSIS
     Dosage: 20 UG, DAILY (1/D)
     Route: 058
     Dates: start: 20080313
  2. NEURONTIN [Concomitant]
     Indication: BACK PAIN
     Dosage: 400 MG, 2/D
     Route: 048
  3. ARCOXIA [Concomitant]
     Dosage: 90 MG, 2/D
     Route: 048
  4. LEXOTAN [Concomitant]
     Dosage: UNK UNK, EACH EVENING
     Route: 048

REACTIONS (7)
  - DYSPNOEA [None]
  - GROIN PAIN [None]
  - HEADACHE [None]
  - LIMB DISCOMFORT [None]
  - PAIN IN EXTREMITY [None]
  - TACHYCARDIA [None]
  - VARICOSE VEIN [None]
